FAERS Safety Report 10522006 (Version 2)
Quarter: 2014Q4

REPORT INFORMATION
  Report Type: Spontaneous
  Country: JP (occurrence: None)
  Receive Date: 20141014
  Receipt Date: 20141203
  Transmission Date: 20150528
  Serious: Yes (Death)
  Sender: FDA-Public Use
  Company Number: JP-20140325

PATIENT
  Age: 51 Year
  Sex: Male

DRUGS (2)
  1. LIPIODOL ULTRA FLUID [Suspect]
     Active Substance: ETHIODIZED OIL
     Indication: THERAPEUTIC EMBOLISATION
     Dosage: 0.3 ML (0.3 ML, 1 IN 1 D), INTRA-ARTERIAL ?
     Route: 013
     Dates: start: 2011, end: 2011
  2. NBCA (N-BUTYL-2-CYANOACRYLATE) [Suspect]
     Active Substance: ENBUCRILATE
     Indication: THERAPEUTIC EMBOLISATION
     Dosage: UNK (0.1 ML), INTRA-ARTERIAL
     Route: 013
     Dates: start: 2011

REACTIONS (2)
  - Drug ineffective for unapproved indication [None]
  - Abdominal compartment syndrome [None]

NARRATIVE: CASE EVENT DATE: 2011
